FAERS Safety Report 6647047-2 (Version None)
Quarter: 2010Q1

REPORT INFORMATION
  Report Type: 
  Country: None (occurrence: None)
  Receive Date: 20100323
  Receipt Date: 20100323
  Transmission Date: 20100710
  Serious: Yes (Life-Threatening)
  Sender: FDA-Public Use
  Company Number: FR-EISAI INC.-E2020-06265-SPO-FR

PATIENT
  Sex: Female

DRUGS (16)
  1. ARICEPT [Suspect]
     Route: 048
     Dates: start: 20080801, end: 20090915
  2. ARICEPT [Suspect]
     Route: 048
     Dates: start: 20090916, end: 20090921
  3. LEPONEX [Suspect]
     Indication: HALLUCINATION
     Route: 048
     Dates: start: 20081101, end: 20090919
  4. LEPONEX [Suspect]
     Route: 048
     Dates: start: 20090920, end: 20090921
  5. SEROPRAM [Suspect]
     Route: 048
     Dates: start: 20090919, end: 20090921
  6. ZESTRIL [Suspect]
     Route: 048
     Dates: end: 20090921
  7. MODOPAR [Suspect]
     Dosage: 3 UNITS
     Route: 048
  8. LYSANXIA [Suspect]
     Indication: ANXIETY
     Dosage: UNKNOWN
     Route: 048
  9. NOCTAMIDE [Suspect]
     Indication: INSOMNIA
     Dosage: 0.5 UNIT
     Route: 048
     Dates: end: 20090918
  10. PARACETAMOL [Suspect]
     Indication: PAIN
     Route: 048
  11. EQUANIL [Suspect]
     Indication: ANXIETY
     Dosage: UNKNOWN
     Route: 048
  12. PROZAC [Concomitant]
     Dates: start: 20090101
  13. NEXIUM [Concomitant]
     Dates: start: 20090101
  14. DEDROGYL [Concomitant]
     Dates: start: 20090101
  15. LOVENOX [Concomitant]
     Dates: start: 20090101
  16. DOMPERIDONE [Concomitant]
     Dates: start: 20090101

REACTIONS (1)
  - CARDIO-RESPIRATORY ARREST [None]
